FAERS Safety Report 25541024 (Version 1)
Quarter: 2025Q3

REPORT INFORMATION
  Report Type: Report from Study
  Country: KW (occurrence: KW)
  Receive Date: 20250710
  Receipt Date: 20250710
  Transmission Date: 20251020
  Serious: Yes (Other)
  Sender: SANDOZ
  Company Number: KW-SANDOZ-SDZ2025KW048268

PATIENT
  Age: 13 Year
  Sex: Female

DRUGS (1)
  1. OMNITROPE [Suspect]
     Active Substance: SOMATROPIN
     Indication: Growth hormone deficiency
     Dosage: 1.5 MG, QD
     Route: 058
     Dates: start: 20250511, end: 202505

REACTIONS (1)
  - Epiphyses premature fusion [Not Recovered/Not Resolved]

NARRATIVE: CASE EVENT DATE: 20250501
